FAERS Safety Report 7309034-0 (Version None)
Quarter: 2011Q1

REPORT INFORMATION
  Report Type: 
  Country: None (occurrence: None)
  Receive Date: 20110223
  Receipt Date: 20110221
  Transmission Date: 20110831
  Serious: Yes (Life-Threatening, Hospitalization)
  Sender: FDA-Public Use
  Company Number: CHPA2011DE01531

PATIENT
  Sex: Male
  Weight: 89 kg

DRUGS (5)
  1. AMLODIPINE [Concomitant]
     Dosage: UNK, UNK
     Route: 065
  2. METOHEXAL [Concomitant]
     Indication: HYPERTENSION
     Dosage: 23.75, 1-0-0
     Route: 065
  3. CANDESARTAN [Concomitant]
     Dosage: UNK, UNK
     Route: 065
  4. NICOTINELL TTS 20 [Suspect]
     Indication: SMOKING CESSATION THERAPY
     Dosage: 14 MG, QD
     Route: 062
     Dates: start: 20110112, end: 20110114
  5. ATACAND [Concomitant]
     Indication: HYPERTENSION
     Dosage: 16 MG, 1-0-0
     Route: 065

REACTIONS (3)
  - HEART RATE INCREASED [None]
  - HYPERTENSIVE CRISIS [None]
  - HYPERTENSION [None]
